FAERS Safety Report 10066062 (Version 2)
Quarter: 2014Q2

REPORT INFORMATION
  Report Type: Spontaneous
  Country: CA (occurrence: CA)
  Receive Date: 20140408
  Receipt Date: 20140424
  Transmission Date: 20141212
  Serious: Yes (Other)
  Sender: FDA-Public Use
  Company Number: CA-BAYER-2014-049125

PATIENT
  Sex: Female

DRUGS (4)
  1. AVELOX [Suspect]
     Indication: RESPIRATORY TRACT INFECTION
     Dosage: UNK
     Dates: start: 200801
  2. AVELOX [Suspect]
     Indication: BRONCHITIS
     Dosage: 1 DF, QD
     Dates: start: 200806, end: 2008
  3. CORTEF [Concomitant]
  4. MOTRIN [Concomitant]

REACTIONS (14)
  - Rheumatoid arthritis [None]
  - Musculoskeletal disorder [None]
  - Hand deformity [None]
  - Foot deformity [None]
  - Pain [None]
  - Joint swelling [None]
  - Arthralgia [None]
  - Activities of daily living impaired [None]
  - Pain in extremity [None]
  - Bedridden [None]
  - Peripheral swelling [None]
  - Tenderness [None]
  - Joint dislocation [None]
  - Mental impairment [None]
